FAERS Safety Report 17839458 (Version 1)
Quarter: 2020Q2

REPORT INFORMATION
  Report Type: Spontaneous
  Country: US (occurrence: US)
  Receive Date: 20200529
  Receipt Date: 20200529
  Transmission Date: 20200714
  Serious: Yes (Other)
  Sender: FDA-Public Use
  Company Number: None

PATIENT
  Age: 55 Year
  Sex: Female
  Weight: 83.25 kg

DRUGS (6)
  1. NP THYROID [Suspect]
     Active Substance: LEVOTHYROXINE\LIOTHYRONINE
     Indication: HYPOTHYROIDISM
     Route: 048
  2. XANAX [Suspect]
     Active Substance: ALPRAZOLAM
  3. PROGESTERONE. [Suspect]
     Active Substance: PROGESTERONE
  4. ESTRADIOL. [Concomitant]
     Active Substance: ESTRADIOL
  5. LEVOTHYROXINE. [Suspect]
     Active Substance: LEVOTHYROXINE
  6. TESTOSTERONE. [Suspect]
     Active Substance: TESTOSTERONE

REACTIONS (5)
  - Tachycardia [None]
  - Chest pain [None]
  - Adverse drug reaction [None]
  - Weight increased [None]
  - Product prescribing issue [None]

NARRATIVE: CASE EVENT DATE: 20191202
